FAERS Safety Report 10554685 (Version 1)
Quarter: 2014Q4

REPORT INFORMATION
  Report Type: Spontaneous
  Country: BR (occurrence: BR)
  Receive Date: 20141030
  Receipt Date: 20141030
  Transmission Date: 20150529
  Serious: Yes (Other)
  Sender: FDA-Public Use
  Company Number: BR-PFIZER INC-2014299154

PATIENT
  Age: 71 Year
  Sex: Female
  Weight: 65 kg

DRUGS (2)
  1. LYRICA [Suspect]
     Active Substance: PREGABALIN
     Dosage: UNK
     Route: 048
  2. OCUPRESS [Concomitant]
     Active Substance: CARTEOLOL HYDROCHLORIDE
     Indication: INTRAOCULAR PRESSURE TEST ABNORMAL
     Dosage: 1 DROP IN EACH EYE, 2X/DAY
     Route: 047
     Dates: start: 201408

REACTIONS (2)
  - Intraocular pressure increased [Recovering/Resolving]
  - Eye pain [Unknown]

NARRATIVE: CASE EVENT DATE: 2014
